FAERS Safety Report 8844927 (Version 1)
Quarter: 2012Q4

REPORT INFORMATION
  Report Type: Spontaneous
  Country: US (occurrence: None)
  Receive Date: 20121002
  Receipt Date: 20121002
  Transmission Date: 20130627
  Serious: Yes (Hospitalization, Other)
  Sender: FDA-Public Use
  Company Number: RB-43078-2012

PATIENT
  Age: 50 Year
  Sex: Male

DRUGS (8)
  1. SUBOXONE [Suspect]
     Indication: DRUG DEPENDENCE
     Route: 060
     Dates: start: 2007, end: 2011
  2. SUBOXONE [Suspect]
     Indication: DRUG DEPENDENCE
     Dosage: 24 mg, taken alernately with Suboxone film Sublingual)
     Dates: start: 2011, end: 20110711
  3. SUBOXONE [Suspect]
     Indication: DRUG DEPENDENCE
     Route: 060
     Dates: start: 2011
  4. ATENOLOL [Concomitant]
  5. PLAVIX [Concomitant]
  6. ACETYLSALICYLIC ACID [Concomitant]
  7. PROZAC [Concomitant]
  8. SIMVASTATIN [Concomitant]

REACTIONS (1)
  - Myocardial infarction [None]
